FAERS Safety Report 6633345-5 (Version None)
Quarter: 2010Q1

REPORT INFORMATION
  Report Type: 
  Country: None (occurrence: None)
  Receive Date: 20100312
  Receipt Date: 20100302
  Transmission Date: 20100710
  Serious: Yes (Other)
  Sender: FDA-Public Use
  Company Number: FI-ROCHE-687249

PATIENT
  Sex: Male

DRUGS (8)
  1. AVASTIN [Suspect]
     Route: 042
     Dates: start: 20081208, end: 20090318
  2. AVASTIN [Suspect]
     Route: 042
     Dates: start: 20091117
  3. 5-FU [Concomitant]
     Dates: start: 20081208, end: 20090318
  4. 5-FU [Concomitant]
     Dates: start: 20091117
  5. LEUCOVORIN CALCIUM [Concomitant]
     Dates: start: 20081208, end: 20090318
  6. LEUCOVORIN CALCIUM [Concomitant]
     Dates: start: 20091117
  7. OXALIPLATIN [Concomitant]
     Dates: start: 20081208, end: 20090318
  8. OXALIPLATIN [Concomitant]
     Dates: start: 20091117

REACTIONS (2)
  - HYPERTENSION [None]
  - TYPE 2 DIABETES MELLITUS [None]
